FAERS Safety Report 18789654 (Version 1)
Quarter: 2021Q1

REPORT INFORMATION
  Report Type: Spontaneous
  Country: GB (occurrence: GB)
  Receive Date: 20210126
  Receipt Date: 20210126
  Transmission Date: 20210419
  Serious: Yes (Other)
  Sender: FDA-Public Use
  Company Number: GB-MYLANLABS-2021M1004192

PATIENT
  Age: 49 Year
  Sex: Female
  Weight: 71 kg

DRUGS (3)
  1. CARDICOR [Concomitant]
     Active Substance: BISOPROLOL
     Dosage: 5 MILLIGRAM, PRN
  2. TRETINOIN. [Suspect]
     Active Substance: TRETINOIN
     Indication: SKIN WRINKLING
     Dosage: 1 DOSAGE FORM, QW
     Route: 003
  3. DIAZEPAM. [Concomitant]
     Active Substance: DIAZEPAM
     Dosage: 5 MILLIGRAM, PRN

REACTIONS (3)
  - Electrocardiogram QT prolonged [Not Recovered/Not Resolved]
  - Cough [Not Recovered/Not Resolved]
  - Anxiety disorder [Not Recovered/Not Resolved]

NARRATIVE: CASE EVENT DATE: 20200922
